FAERS Safety Report 8002466-7 (Version None)
Quarter: 2011Q4

REPORT INFORMATION
  Report Type: 
  Country: None (occurrence: None)
  Receive Date: 20111222
  Receipt Date: 20111212
  Transmission Date: 20120403
  Serious: Yes (Other)
  Sender: FDA-Public Use
  Company Number: CA-JNJFOC-20111207009

PATIENT
  Sex: Male
  Weight: 91.2 kg

DRUGS (3)
  1. MESALAMINE [Concomitant]
  2. REMICADE [Suspect]
     Indication: CROHN'S DISEASE
     Route: 042
     Dates: start: 20101109
  3. AZATHIOPRINE [Concomitant]

REACTIONS (1)
  - NASAL SEPTUM DEVIATION [None]
